FAERS Safety Report 21065522 (Version 3)
Quarter: 2022Q3

REPORT INFORMATION
  Report Type: Spontaneous
  Country: JP (occurrence: JP)
  Receive Date: 20220711
  Receipt Date: 20220722
  Transmission Date: 20221026
  Serious: Yes (Death, Hospitalization, Other)
  Sender: FDA-Public Use
  Company Number: JP-OTSUKA-2022_035400

PATIENT
  Age: 97 Year
  Sex: Male

DRUGS (5)
  1. TOLVAPTAN [Suspect]
     Active Substance: TOLVAPTAN
     Indication: Cardiac failure
     Dosage: 8 MG/DAY, UNK
     Route: 041
     Dates: start: 20220617, end: 20220621
  2. BISOPROLOL [Concomitant]
     Active Substance: BISOPROLOL
     Indication: Product used for unknown indication
     Dosage: 2MG, UNK
     Route: 065
     Dates: start: 202206
  3. CARPERITIDE [Concomitant]
     Active Substance: CARPERITIDE
     Indication: Product used for unknown indication
     Dosage: 4000MCG, UNK
     Route: 065
     Dates: start: 202206, end: 20220622
  4. LASIX [Concomitant]
     Active Substance: FUROSEMIDE
     Indication: Product used for unknown indication
     Dosage: 20MG, UNK
     Route: 065
     Dates: start: 202206, end: 20220618
  5. LASIX [Concomitant]
     Active Substance: FUROSEMIDE
     Dosage: 40MG, UNK
     Route: 065
     Dates: start: 20220619, end: 20220622

REACTIONS (2)
  - Cardiac failure congestive [Fatal]
  - Blood potassium increased [Unknown]

NARRATIVE: CASE EVENT DATE: 20220617
